FAERS Safety Report 7455023-5 (Version None)
Quarter: 2011Q2

REPORT INFORMATION
  Report Type: 
  Country: None (occurrence: None)
  Receive Date: 20110503
  Receipt Date: 20110426
  Transmission Date: 20111010
  Serious: Yes (Hospitalization)
  Sender: FDA-Public Use
  Company Number: SE-PFIZER INC-2011092710

PATIENT
  Age: 72 Year
  Sex: Male

DRUGS (8)
  1. WARAN [Interacting]
     Indication: ATRIAL FIBRILLATION
     Dosage: UNK
     Route: 048
  2. AMLODIPINE [Concomitant]
  3. CLAFORAN [Concomitant]
     Indication: PNEUMONIA
     Dosage: UNK
     Dates: end: 20110201
  4. BACTRIM [Interacting]
     Indication: PNEUMONIA
     Dosage: UNK
     Route: 048
     Dates: start: 20110214, end: 20110219
  5. FUROSEMIDE [Concomitant]
  6. BISOPROLOL [Concomitant]
  7. ZOLPIDEM TARTRATE [Concomitant]
  8. CORDARONE [Suspect]
     Indication: ATRIAL FIBRILLATION
     Dosage: UNK

REACTIONS (3)
  - DRUG INTERACTION [None]
  - INTERNATIONAL NORMALISED RATIO INCREASED [None]
  - GASTROINTESTINAL HAEMORRHAGE [None]
